FAERS Safety Report 4736708-8 (Version None)
Quarter: 2005Q3

REPORT INFORMATION
  Report Type: 
  Country: None (occurrence: None)
  Receive Date: 20050802
  Receipt Date: 20050518
  Transmission Date: 20060218
  Serious: Yes (Hospitalization)
  Sender: FDA-Public Use
  Company Number: 2005102723

PATIENT
  Age: 25 Year
  Sex: Female

DRUGS (7)
  1. ATARAX [Suspect]
     Indication: ILL-DEFINED DISORDER
     Dosage: (1 IN 1 D), ORAL
     Route: 048
  2. MEPROBAMATE [Suspect]
     Indication: ILL-DEFINED DISORDER
     Dosage: (2 IN 1 D), ORAL
     Route: 048
  3. FLUOXETINE [Suspect]
     Indication: ILL-DEFINED DISORDER
     Dosage: 20 MG (1 IN 1 D), ORAL
     Route: 048
  4. SULPIRIDE (SULPIRIDE) [Suspect]
     Indication: ILL-DEFINED DISORDER
     Dosage: 150 MG (50 MG, 3 IN 1 D), ORAL
     Route: 048
  5. CLONAZEPAM [Suspect]
     Indication: ILL-DEFINED DISORDER
     Dosage: 4 MG (2 MG, 2 IN 1 D), ORAL
     Route: 048
  6. PROPACETAMOL HYDROCHOORIDE (PROPACETAMOL HYDROCHLORIDE) [Concomitant]
  7. MEPERIDINE HYDROCHLORIDE [Concomitant]

REACTIONS (4)
  - AGITATION NEONATAL [None]
  - CAESAREAN SECTION [None]
  - DRUG EXPOSURE DURING PREGNANCY [None]
  - TREMOR NEONATAL [None]
